FAERS Safety Report 9639105 (Version 1)
Quarter: 2013Q4

REPORT INFORMATION
  Report Type: Spontaneous
  Country: DE (occurrence: None)
  Receive Date: 20131011
  Receipt Date: 20131011
  Transmission Date: 20140711
  Serious: Yes (Death)
  Sender: FDA-Public Use
  Company Number: 2013038248

PATIENT
  Age: 84 Year
  Sex: Male

DRUGS (4)
  1. PRIVIGEN [Suspect]
     Indication: CHRONIC LYMPHOCYTIC LEUKAEMIA
     Dosage: 20 G TOTAL, INFUSION RATE 1.66 ML/MIN
     Dates: start: 20130221, end: 20130221
  2. PRIVIGEN [Suspect]
     Indication: INFECTION
     Dosage: 20 G TOTAL, INFUSION RATE 1.66 ML/MIN
     Dates: start: 20130221, end: 20130221
  3. PRIVIGEN [Suspect]
     Indication: SECONDARY IMMUNODEFICIENCY
     Dosage: 20 G TOTAL, INFUSION RATE 1.66 ML/MIN
     Dates: start: 20130221, end: 20130221
  4. RAMIPRIL (RAMIPRIL) [Concomitant]

REACTIONS (1)
  - Death [None]
